FAERS Safety Report 4635713-X (Version None)
Quarter: 2005Q2

REPORT INFORMATION
  Report Type: 
  Country: None (occurrence: None)
  Receive Date: 20050413
  Receipt Date: 20050401
  Transmission Date: 20051028
  Serious: Yes (Hospitalization, Other)
  Sender: FDA-Public Use
  Company Number: 26371

PATIENT
  Age: 3 Year
  Sex: Male

DRUGS (4)
  1. ALDARA [Suspect]
     Indication: MOLLUSCUM CONTAGIOSUM
     Dosage: (1 SACHET, 3 IN 1 WEEK(S), TOPICAL
     Route: 061
     Dates: start: 20050113, end: 20050201
  2. ALDARA [Suspect]
     Indication: MOLLUSCUM CONTAGIOSUM
     Dosage: (1 SACHET, 3 IN 1 WEEK(S), TOPICAL
     Route: 061
     Dates: start: 20050310
  3. TAZORAC [Suspect]
  4. CANTHACUR PS [Suspect]

REACTIONS (1)
  - FEBRILE CONVULSION [None]
